FAERS Safety Report 8043642-7 (Version None)
Quarter: 2012Q1

REPORT INFORMATION
  Report Type: 
  Country: None (occurrence: None)
  Receive Date: 20120112
  Receipt Date: 20120103
  Transmission Date: 20120608
  Serious: Yes (Hospitalization)
  Sender: FDA-Public Use
  Company Number: FR-ASTRAZENECA-2012SE00485

PATIENT
  Age: 60 Year
  Sex: Female

DRUGS (10)
  1. NOROXIN [Suspect]
     Indication: CYSTITIS BACTERIAL
     Route: 048
     Dates: start: 20111122, end: 20111130
  2. PRAZEPAM [Concomitant]
  3. CYMBALTA [Suspect]
     Indication: DEPRESSION
     Route: 048
     Dates: start: 20111107, end: 20111208
  4. RABEPRAZOLE SODIUM [Concomitant]
  5. PREDNISONE TAB [Concomitant]
     Indication: CUTANEOUS LUPUS ERYTHEMATOSUS
     Route: 048
  6. PERINDOPRIL ERBUMINE [Concomitant]
     Route: 048
  7. ASPIRIN [Concomitant]
  8. SIMVASTATIN [Concomitant]
  9. QUETIAPINE FUMARATE [Suspect]
     Indication: DEPRESSION
     Route: 048
     Dates: start: 20111201, end: 20111202
  10. ISOPTIN [Concomitant]

REACTIONS (2)
  - PRURITUS [None]
  - DRUG ERUPTION [None]
